FAERS Safety Report 18793262 (Version 2)
Quarter: 2021Q1

REPORT INFORMATION
  Report Type: Spontaneous
  Country: None (occurrence: US)
  Receive Date: 20210127
  Receipt Date: 20210330
  Transmission Date: 20210419
  Serious: Yes (Other)
  Sender: FDA-Public Use
  Company Number: US-GLAXOSMITHKLINE-US2021GSK018825

PATIENT
  Sex: Male

DRUGS (11)
  1. ZANTAC [Suspect]
     Active Substance: RANITIDINE HYDROCHLORIDE
     Indication: PROSTATE CANCER
     Dosage: 150 MG, QD
     Route: 065
     Dates: start: 201606, end: 202008
  2. RANITIDINE. [Suspect]
     Active Substance: RANITIDINE
     Indication: PROSTATE CANCER
     Dosage: 150 MG, QD
     Route: 065
     Dates: start: 201606, end: 202008
  3. ZANTAC [Suspect]
     Active Substance: RANITIDINE HYDROCHLORIDE
     Indication: PROSTATE CANCER
     Dosage: UNK, QD
     Route: 005
     Dates: start: 201606, end: 202008
  4. RANITIDINE. [Suspect]
     Active Substance: RANITIDINE
     Indication: PROSTATE CANCER
     Dosage: 150 MG, QD
     Route: 065
     Dates: start: 201606, end: 202008
  5. ZANTAC [Suspect]
     Active Substance: RANITIDINE HYDROCHLORIDE
     Dosage: UNK, QD
     Route: 065
     Dates: start: 201606, end: 202008
  6. RANITIDINE. [Suspect]
     Active Substance: RANITIDINE
     Dosage: UNK
  7. RANITIDINE. [Suspect]
     Active Substance: RANITIDINE
     Dosage: UNK
  8. RANITIDINE. [Suspect]
     Active Substance: RANITIDINE
     Dosage: UNK
  9. ZANTAC [Suspect]
     Active Substance: RANITIDINE HYDROCHLORIDE
     Indication: PROSTATE CANCER
     Dosage: 150 MG, QD
     Route: 065
     Dates: start: 201606, end: 202008
  10. ZANTAC [Suspect]
     Active Substance: RANITIDINE HYDROCHLORIDE
     Dosage: UNK, QD
     Route: 065
     Dates: start: 201606, end: 202008
  11. RANITIDINE. [Suspect]
     Active Substance: RANITIDINE
     Dosage: UNK

REACTIONS (1)
  - Prostate cancer [Unknown]
